FAERS Safety Report 8364140-7 (Version None)
Quarter: 2012Q2

REPORT INFORMATION
  Report Type: 
  Country: None (occurrence: None)
  Receive Date: 20120516
  Receipt Date: 20120515
  Transmission Date: 20120825
  Serious: Yes (Death)
  Sender: FDA-Public Use
  Company Number: GB-JNJFOC-20120412850

PATIENT

DRUGS (15)
  1. DOXORUBICIN HCL [Suspect]
     Dosage: CYCLE 1
     Route: 040
  2. VINCRISTINE [Suspect]
     Indication: DIFFUSE LARGE B-CELL LYMPHOMA
     Dosage: CYCLE 1
     Route: 040
  3. RITUXIMAB [Suspect]
     Indication: DIFFUSE LARGE B-CELL LYMPHOMA
     Dosage: CYCLE 1
     Route: 040
  4. DOXORUBICIN HCL [Suspect]
     Dosage: CYCLE 1
     Route: 040
  5. CYCLOPHOSPHAMIDE [Suspect]
     Indication: BURKITT'S LYMPHOMA
     Dosage: CYCLE 1
     Route: 040
  6. ANTHRACYCLINE [Suspect]
     Indication: BURKITT'S LYMPHOMA
     Dosage: CYCLE 1
     Route: 065
  7. ANTHRACYCLINE [Suspect]
     Indication: DIFFUSE LARGE B-CELL LYMPHOMA
     Dosage: CYCLE 1
     Route: 065
  8. DOXORUBICIN HCL [Suspect]
     Indication: BURKITT'S LYMPHOMA
     Dosage: CYCLE 1
     Route: 042
  9. DOXORUBICIN HCL [Suspect]
     Indication: DIFFUSE LARGE B-CELL LYMPHOMA
     Dosage: CYCLE 1
     Route: 042
  10. PREDNISOLONE [Suspect]
     Indication: DIFFUSE LARGE B-CELL LYMPHOMA
     Dosage: CYCLE 1
     Route: 040
  11. CYCLOPHOSPHAMIDE [Suspect]
     Indication: DIFFUSE LARGE B-CELL LYMPHOMA
     Dosage: CYCLE 1
     Route: 040
  12. PREDNISOLONE [Suspect]
     Indication: BURKITT'S LYMPHOMA
     Dosage: CYCLE 1
     Route: 040
  13. RITUXIMAB [Suspect]
     Indication: BURKITT'S LYMPHOMA
     Dosage: CYCLE 1
     Route: 040
  14. VINCRISTINE [Suspect]
     Indication: BURKITT'S LYMPHOMA
     Dosage: CYCLE 1
     Route: 040
  15. STEROIDS NOS [Concomitant]
     Indication: PREMEDICATION
     Route: 040

REACTIONS (2)
  - CARDIAC FAILURE [None]
  - NEUTROPENIA [None]
